FAERS Safety Report 6892816-7 (Version None)
Quarter: 2010Q3

REPORT INFORMATION
  Report Type: 
  Country: None (occurrence: None)
  Receive Date: 20100731
  Receipt Date: 20080930
  Transmission Date: 20110219
  Serious: No
  Sender: FDA-Public Use
  Company Number: US-PFIZER INC-2008082492

PATIENT
  Age: 61 Year
  Sex: Male
  Weight: 81.65 kg

DRUGS (2)
  1. FLAGYL [Suspect]
     Indication: HELICOBACTER INFECTION
     Dates: start: 20080901
  2. ALCOHOL [Interacting]

REACTIONS (2)
  - CONJUNCTIVITIS [None]
  - DRUG INTERACTION [None]
